FAERS Safety Report 5748745-5 (Version None)
Quarter: 2008Q2

REPORT INFORMATION
  Report Type: 
  Country: None (occurrence: None)
  Receive Date: 20080522
  Receipt Date: 20080507
  Transmission Date: 20081010
  Serious: Yes (Hospitalization)
  Sender: FDA-Public Use
  Company Number: 2008001082

PATIENT
  Sex: Male
  Weight: 75.29 kg

DRUGS (2)
  1. ERLOTINIB (ERLOTINIB) (TABLET) (ERLOTINIB) [Suspect]
     Indication: GLIOBLASTOMA MULTIFORME
     Dosage: 150 MG, QD; ORAL
     Route: 048
     Dates: start: 20080201
  2. TEMSIROLIMUS (CCI-779) (INJECTION FOR INFUSION) [Suspect]
     Dosage: 15 MG, WEEKLY, INTRAVENOUS
     Route: 042
     Dates: start: 20080201

REACTIONS (2)
  - CONFUSIONAL STATE [None]
  - CONVULSION [None]
